FAERS Safety Report 5008143-9 (Version None)
Quarter: 2006Q2

REPORT INFORMATION
  Report Type: 
  Country: None (occurrence: None)
  Receive Date: 20060404
  Receipt Date: 20050929
  Transmission Date: 20061013
  Serious: Yes (Hospitalization, Other)
  Sender: FDA-Public Use
  Company Number: 2005125078

PATIENT
  Sex: Female

DRUGS (8)
  1. GEODON [Suspect]
     Indication: AGITATION
     Dosage: 40 MG (20 MG, 2  IN 1 D)
     Dates: start: 20050708, end: 20050901
  2. GEODON [Suspect]
     Indication: DEMENTIA ALZHEIMER'S TYPE
     Dosage: 40 MG (20 MG, 2  IN 1 D)
     Dates: start: 20050708, end: 20050901
  3. REMERON [Concomitant]
  4. NAPROXEN [Concomitant]
  5. LORAZEPAM [Concomitant]
  6. ARICEPT (LONEPEZIL) [Concomitant]
  7. NAMENDA [Concomitant]
  8. ATIVAN [Concomitant]

REACTIONS (4)
  - CONVULSION [None]
  - DIVERTICULITIS [None]
  - MENTAL IMPAIRMENT [None]
  - OSTEOPOROSIS [None]
